FAERS Safety Report 19146313 (Version 1)
Quarter: 2021Q2

REPORT INFORMATION
  Report Type: Spontaneous
  Country: JP (occurrence: JP)
  Receive Date: 20210416
  Receipt Date: 20210416
  Transmission Date: 20210717
  Serious: Yes (Other)
  Sender: FDA-Public Use
  Company Number: JP-PFIZER INC-2021279951

PATIENT
  Age: 80 Year
  Sex: Female
  Weight: 56.6 kg

DRUGS (1)
  1. LORBRENA [Suspect]
     Active Substance: LORLATINIB
     Indication: NON-SMALL CELL LUNG CANCER
     Dosage: 100 MG, DAILY
     Dates: start: 20191106, end: 20191209

REACTIONS (4)
  - Oedema peripheral [Recovering/Resolving]
  - Pulmonary congestion [Recovering/Resolving]
  - Pleural effusion [Recovering/Resolving]
  - Cardiomegaly [Recovering/Resolving]

NARRATIVE: CASE EVENT DATE: 20191129
